FAERS Safety Report 17400294 (Version 3)
Quarter: 2020Q2

REPORT INFORMATION
  Report Type: Report from Study
  Country: CA (occurrence: CA)
  Receive Date: 20200211
  Receipt Date: 20200401
  Transmission Date: 20200713
  Serious: Yes (Other)
  Sender: FDA-Public Use
  Company Number: CA-BRISTOL-MYERS SQUIBB COMPANY-BMS-2019-018699

PATIENT
  Age: 62 Year
  Sex: Female

DRUGS (8)
  1. PLAQUENIL [HYDROXYCHLOROQUINE PHOSPHATE] [Concomitant]
     Active Substance: HYDROXYCHLOROQUINE DIPHOSPHATE
     Indication: PRODUCT USED FOR UNKNOWN INDICATION
     Dosage: UNK
     Route: 065
  2. TRAMACET [Concomitant]
     Active Substance: ACETAMINOPHEN\TRAMADOL
     Indication: PRODUCT USED FOR UNKNOWN INDICATION
     Dosage: UNK
     Route: 065
  3. VIT D [Concomitant]
     Active Substance: VITAMIN D NOS
     Indication: PRODUCT USED FOR UNKNOWN INDICATION
     Dosage: UNK
     Route: 065
  4. METFORMIN [Concomitant]
     Active Substance: METFORMIN HYDROCHLORIDE
     Indication: PRODUCT USED FOR UNKNOWN INDICATION
     Dosage: UNK
     Route: 065
  5. PREDNISONE. [Concomitant]
     Active Substance: PREDNISONE
     Indication: PRODUCT USED FOR UNKNOWN INDICATION
     Dosage: UNK
     Route: 065
  6. LOSEC [OMEPRAZOLE SODIUM] [Concomitant]
     Active Substance: OMEPRAZOLE SODIUM
     Indication: PRODUCT USED FOR UNKNOWN INDICATION
     Dosage: UNK
     Route: 065
  7. ABATACEPT [Suspect]
     Active Substance: ABATACEPT
     Indication: RHEUMATOID ARTHRITIS
     Dosage: 750 MILLIGRAM, Q4WK
     Route: 042
     Dates: start: 20190208
  8. COVERSYL [PERINDOPRIL ARGININE] [Concomitant]
     Active Substance: PERINDOPRIL ARGININE
     Indication: PRODUCT USED FOR UNKNOWN INDICATION
     Dosage: UNK
     Route: 065

REACTIONS (21)
  - Headache [Recovering/Resolving]
  - Urinary tract infection [Recovered/Resolved]
  - Viral infection [Recovering/Resolving]
  - Tooth disorder [Unknown]
  - Device dislocation [Unknown]
  - Malaise [Unknown]
  - Gastroenteritis viral [Recovered/Resolved]
  - Tooth infection [Recovering/Resolving]
  - Tooth abscess [Unknown]
  - Stomatitis [Recovered/Resolved]
  - Pyrexia [Recovering/Resolving]
  - Lymphadenopathy [Recovered/Resolved]
  - Sinus congestion [Unknown]
  - Sinusitis [Recovering/Resolving]
  - Eyelid margin crusting [Unknown]
  - Arthropathy [Unknown]
  - Fatigue [Recovered/Resolved]
  - Seasonal allergy [Unknown]
  - Eye pruritus [Unknown]
  - Cough [Unknown]
  - Inflammation [Unknown]

NARRATIVE: CASE EVENT DATE: 20190211
